FAERS Safety Report 17297942 (Version 3)
Quarter: 2020Q1

REPORT INFORMATION
  Report Type: Spontaneous
  Country: HR (occurrence: HR)
  Receive Date: 20200121
  Receipt Date: 20200211
  Transmission Date: 20200409
  Serious: Yes (Life-Threatening, Disabling, Other)
  Sender: FDA-Public Use
  Company Number: HR-PFIZER INC-2020026391

PATIENT
  Age: 40 Year
  Sex: Female

DRUGS (31)
  1. DOXORUBICIN [Suspect]
     Active Substance: DOXORUBICIN
     Dosage: UNK, CYCLIC (THREE CYCLES)
  2. GELCLAIR [Concomitant]
     Indication: MOUTH ULCERATION
     Dosage: UNK, 3X/DAY
  3. FURSEMID [FUROSEMIDE] [Concomitant]
     Active Substance: FUROSEMIDE
     Dosage: UNK
  4. CARVELOL [Concomitant]
     Active Substance: CARVEDILOL
     Dosage: UNK
  5. VINCRISTINE [Suspect]
     Active Substance: VINCRISTINE
     Indication: DIFFUSE LARGE B-CELL LYMPHOMA STAGE IV
     Dosage: UNK, CYCLIC (FIVE CYCLES (R-CHOEP PROTOCOL)
  6. DOXORUBICIN [Suspect]
     Active Substance: DOXORUBICIN
     Indication: DIFFUSE LARGE B-CELL LYMPHOMA STAGE IV
     Dosage: UNK, CYCLIC (FIVE CYCLES (R-CHOEP PROTOCOL) AND THREE CYCLES (R-CHEVP PROTOCOL)
  7. FLUCONAZOLE. [Concomitant]
     Active Substance: FLUCONAZOLE
     Indication: ANTIBIOTIC PROPHYLAXIS
     Dosage: UNK
  8. ACYCLOVIR [ACICLOVIR] [Concomitant]
     Active Substance: ACYCLOVIR
     Indication: ANTIBIOTIC PROPHYLAXIS
     Dosage: UNK
  9. TRITACE [Concomitant]
     Active Substance: RAMIPRIL
     Dosage: UNK
  10. METHYLPREDNISOLONE. [Suspect]
     Active Substance: METHYLPREDNISOLONE
     Dosage: UNK, CYCLIC (THREE CYCLES)
  11. ETOPOSIDE. [Suspect]
     Active Substance: ETOPOSIDE
     Indication: DIFFUSE LARGE B-CELL LYMPHOMA STAGE IV
     Dosage: UNK, CYCLIC (FIVE CYCLES (R-CHOEP PROTOCOL) AND THREE CYCLES (R-CHEVP PROTOCOL)
  12. CYCLOPHOSPHAMIDE. [Suspect]
     Active Substance: CYCLOPHOSPHAMIDE
     Indication: DIFFUSE LARGE B-CELL LYMPHOMA STAGE IV
     Dosage: UNK, CYCLIC (FIVE CYCLES (R-CHOEP PROTOCOL) AND THREE CYCLES (R-CHEVP PROTOCOL))
  13. RITUXIMAB. [Suspect]
     Active Substance: RITUXIMAB
     Dosage: UNK, CYCLIC (THREE CYCLES)
  14. AZACITIDINE. [Concomitant]
     Active Substance: AZACITIDINE
     Dosage: UNK, CYCLIC (FIRST CYCLE)
  15. THIOGUANINE [Concomitant]
     Active Substance: THIOGUANINE
     Indication: REFRACTORY ANAEMIA WITH AN EXCESS OF BLASTS
     Dosage: UNK (SHORT COURSE)
  16. CONTROLOC [Concomitant]
     Active Substance: PANTOPRAZOLE SODIUM
     Dosage: UNK
  17. CURASEPT [CHLORHEXIDINE GLUCONATE] [Concomitant]
     Indication: THERAPEUTIC GARGLE
     Dosage: UNK, 3X/DAY(MOUTHWASH THREE TIMES A DAY)
  18. DOLOKAIN [Concomitant]
     Indication: MOUTH ULCERATION
     Dosage: UNK, 3X/DAY
  19. DIFLAMM [Concomitant]
     Dosage: UNK, 3X/DAY(UNK(SOLUTION, BENZYDAMINE HYDROCHLORIDE, 3M)
  20. CYCLOPHOSPHAMIDE. [Suspect]
     Active Substance: CYCLOPHOSPHAMIDE
     Dosage: UNK, CYCLIC (THREE CYCLES)
  21. AZACITIDINE. [Concomitant]
     Active Substance: AZACITIDINE
     Indication: ACUTE MYELOID LEUKAEMIA
     Dosage: UNK, CYCLIC (THREE CYCLES)
  22. DIFLUCAN [Concomitant]
     Active Substance: FLUCONAZOLE
     Dosage: UNK
  23. CURASEPT [CHLORHEXIDINE GLUCONATE] [Concomitant]
     Indication: MOUTH ULCERATION
  24. ETOPOSIDE. [Suspect]
     Active Substance: ETOPOSIDE
     Dosage: UNK, CYCLIC (THREE CYCLES)
  25. CIPROFLOXACIN. [Concomitant]
     Active Substance: CIPROFLOXACIN
     Indication: ANTIBIOTIC PROPHYLAXIS
     Dosage: UNK
  26. BELODERM [BETAMETHASONE] [Concomitant]
     Indication: MOUTH ULCERATION
     Dosage: UNK, 3X/DAY
  27. METHYLPREDNISOLONE. [Suspect]
     Active Substance: METHYLPREDNISOLONE
     Indication: DIFFUSE LARGE B-CELL LYMPHOMA STAGE IV
     Dosage: UNK, CYCLIC (FIVE CYCLES (R-CHOEP PROTOCOL) AND THREE CYCLES (R-CHEVP PROTOCOL)
  28. VINBLASTIN [Suspect]
     Active Substance: VINBLASTINE
     Indication: DIFFUSE LARGE B-CELL LYMPHOMA STAGE IV
     Dosage: UNK, CYCLIC (THREE CYCLES (R-CHEVP PROTOCOL)
  29. RITUXIMAB. [Suspect]
     Active Substance: RITUXIMAB
     Indication: DIFFUSE LARGE B-CELL LYMPHOMA STAGE IV
     Dosage: UNK, CYCLIC (FIVE CYCLES (R-CHOEP PROTOCOL) AND THREE CYCLES (R-CHEVP PROTOCOL)
  30. ALDACTONE [Concomitant]
     Active Substance: SPIRONOLACTONE
     Dosage: UNK
  31. LANITOP [Concomitant]
     Active Substance: METILDIGOXIN
     Dosage: UNK

REACTIONS (8)
  - Thrombocytopenia [Unknown]
  - Leukaemia [Unknown]
  - Pancytopenia [Unknown]
  - Mouth ulceration [Unknown]
  - Refractory anaemia with an excess of blasts [Unknown]
  - Congestive cardiomyopathy [Unknown]
  - Acute myeloid leukaemia [Unknown]
  - Toxic neuropathy [Unknown]
